FAERS Safety Report 10244836 (Version 1)
Quarter: 2014Q2

REPORT INFORMATION
  Report Type: Spontaneous
  Country: US (occurrence: US)
  Receive Date: 20140618
  Receipt Date: 20140618
  Transmission Date: 20141212
  Serious: No
  Sender: FDA-Public Use
  Company Number: US-TARO-2014P1000289

PATIENT
  Sex: Female

DRUGS (5)
  1. ACETAZOLAMIDE TABLETS 125 MG [Suspect]
  2. ACETAZOLAMIDE TABLETS 125 MG [Suspect]
  3. ACETAZOLAMIDE TABLETS 125 MG [Suspect]
  4. KLONOPIN [Concomitant]
  5. CELEXA [Concomitant]

REACTIONS (2)
  - Depression [Not Recovered/Not Resolved]
  - Somnolence [Not Recovered/Not Resolved]
